FAERS Safety Report 10218045 (Version 1)
Quarter: 2014Q2

REPORT INFORMATION
  Report Type: Spontaneous
  Country: US (occurrence: US)
  Receive Date: 20140605
  Receipt Date: 20140605
  Transmission Date: 20141212
  Serious: No
  Sender: FDA-Public Use
  Company Number: US-BIOGENIDEC-2014BI046946

PATIENT
  Sex: Female

DRUGS (2)
  1. TECFIDERA [Suspect]
     Indication: MULTIPLE SCLEROSIS
  2. AVONEX [Concomitant]
     Indication: MULTIPLE SCLEROSIS
     Route: 030
     Dates: start: 20110117, end: 20130501

REACTIONS (4)
  - Nuclear magnetic resonance imaging abnormal [Unknown]
  - Band sensation [Recovered/Resolved]
  - Hypoaesthesia [Recovered/Resolved]
  - Vertigo [Recovered/Resolved]
